FAERS Safety Report 7498417-4 (Version None)
Quarter: 2011Q2

REPORT INFORMATION
  Report Type: 
  Country: None (occurrence: None)
  Receive Date: 20110524
  Receipt Date: 20110512
  Transmission Date: 20111010
  Serious: No
  Sender: FDA-Public Use
  Company Number: US-BIOGENIDEC-2011BI018351

PATIENT
  Sex: Female

DRUGS (1)
  1. AVONEX [Suspect]
     Indication: MULTIPLE SCLEROSIS
     Route: 030
     Dates: start: 20110218

REACTIONS (7)
  - VISUAL ACUITY REDUCED [None]
  - INSOMNIA [None]
  - FORMICATION [None]
  - DEPRESSION [None]
  - PARAESTHESIA [None]
  - ANXIETY [None]
  - MUSCULOSKELETAL STIFFNESS [None]
